FAERS Safety Report 11829869 (Version 1)
Quarter: 2015Q4

REPORT INFORMATION
  Report Type: Spontaneous
  Country: US (occurrence: US)
  Receive Date: 20151212
  Receipt Date: 20151212
  Transmission Date: 20160305
  Serious: No
  Sender: FDA-Public Use
  Company Number: US-BAUSCH-BL-2015-003157

PATIENT
  Age: 79 Year
  Sex: Male

DRUGS (1)
  1. TIMOLOL GEL FORMING SOLUTION [Suspect]
     Active Substance: TIMOLOL
     Indication: PRODUCT USED FOR UNKNOWN INDICATION
     Route: 047

REACTIONS (3)
  - Intraocular pressure increased [Not Recovered/Not Resolved]
  - Tremor [Not Recovered/Not Resolved]
  - Gingival swelling [Not Recovered/Not Resolved]
